FAERS Safety Report 7405752-4 (Version None)
Quarter: 2011Q1

REPORT INFORMATION
  Report Type: 
  Country: None (occurrence: None)
  Receive Date: 20110301
  Receipt Date: 20100611
  Transmission Date: 20110831
  Serious: Yes (Other)
  Sender: FDA-Public Use
  Company Number: US-JNJFOC-20100503249

PATIENT
  Age: 6 Month
  Sex: Male

DRUGS (2)
  1. CONCENTRATED TYLENOL INFANT DROPS [Suspect]
     Indication: ILL-DEFINED DISORDER
     Dates: start: 20100301
  2. CONCENTRATED MOTRIN INFANTS DROPS [Suspect]
     Indication: ILL-DEFINED DISORDER
     Dates: start: 20100301

REACTIONS (2)
  - PRODUCT QUALITY ISSUE [None]
  - HAEMATOCHEZIA [None]
